FAERS Safety Report 8456899-5 (Version None)
Quarter: 2012Q2

REPORT INFORMATION
  Report Type: 
  Country: None (occurrence: None)
  Receive Date: 20120621
  Receipt Date: 20120612
  Transmission Date: 20120825
  Serious: Yes (Hospitalization)
  Sender: FDA-Public Use
  Company Number: CA-JNJFOC-20120607087

PATIENT
  Sex: Male

DRUGS (1)
  1. REMICADE [Suspect]
     Indication: COLITIS ULCERATIVE
     Dosage: LOADING DOSES AS 0,2 AND 6 WEEKS
     Route: 042
     Dates: start: 20110601, end: 20110801

REACTIONS (2)
  - DRUG INEFFECTIVE [None]
  - COLOSTOMY [None]
